FAERS Safety Report 19927927 (Version 4)
Quarter: 2023Q4

REPORT INFORMATION
  Report Type: Spontaneous
  Country: PR (occurrence: US)
  Receive Date: 20211007
  Receipt Date: 20231006
  Transmission Date: 20240110
  Serious: Yes (Other)
  Sender: FDA-Public Use
  Company Number: PR-JNJFOC-20210958909

PATIENT
  Age: 58 Year
  Sex: Female

DRUGS (15)
  1. ELMIRON [Suspect]
     Active Substance: PENTOSAN POLYSULFATE SODIUM
     Indication: Cystitis interstitial
     Route: 048
     Dates: start: 2007
  2. ELMIRON [Suspect]
     Active Substance: PENTOSAN POLYSULFATE SODIUM
     Route: 048
     Dates: start: 20140110
  3. ELMIRON [Suspect]
     Active Substance: PENTOSAN POLYSULFATE SODIUM
     Route: 048
     Dates: start: 201503, end: 201505
  4. ELMIRON [Suspect]
     Active Substance: PENTOSAN POLYSULFATE SODIUM
     Route: 048
     Dates: start: 201506, end: 20201130
  5. OXYCODONE HYDROCHLORIDE [Concomitant]
     Active Substance: OXYCODONE HYDROCHLORIDE
     Indication: Pain management
     Route: 065
     Dates: start: 202010, end: 202012
  6. ALPRAZOLAM [Concomitant]
     Active Substance: ALPRAZOLAM
     Indication: Anxiety
     Route: 065
     Dates: start: 202010, end: 202102
  7. HYDROCHLOROTHIAZIDE [Concomitant]
     Active Substance: HYDROCHLOROTHIAZIDE
     Indication: Hypertension
     Route: 065
     Dates: start: 202010, end: 202012
  8. OXYMORPHONE HYDROCHLORIDE [Concomitant]
     Active Substance: OXYMORPHONE HYDROCHLORIDE
     Indication: Pain management
     Route: 065
     Dates: start: 202010, end: 202012
  9. DICLOFENAC SODIUM [Concomitant]
     Active Substance: DICLOFENAC\DICLOFENAC SODIUM
     Indication: Pain management
     Route: 065
     Dates: start: 202010, end: 202012
  10. DICYCLOMINE [Concomitant]
     Active Substance: DICYCLOMINE HYDROCHLORIDE
     Indication: Irritable bowel syndrome
     Route: 065
     Dates: start: 202010, end: 202012
  11. LOSARTAN POTASSIUM [Concomitant]
     Active Substance: LOSARTAN POTASSIUM
     Indication: Hypertension
     Route: 065
     Dates: start: 202010, end: 202012
  12. MELOXICAM [Concomitant]
     Active Substance: MELOXICAM
     Indication: Pain management
     Route: 065
     Dates: start: 202010, end: 202012
  13. ASPIRIN [Concomitant]
     Active Substance: ASPIRIN
     Indication: Pain management
     Route: 065
     Dates: start: 202010, end: 202012
  14. PRAVASTATIN SODIUM [Concomitant]
     Active Substance: PRAVASTATIN SODIUM
     Indication: Blood cholesterol decreased
     Route: 065
     Dates: start: 202010, end: 202012
  15. OMEPRAZOLE [Concomitant]
     Active Substance: OMEPRAZOLE
     Indication: Dyspepsia
     Route: 065
     Dates: start: 202010, end: 202012

REACTIONS (3)
  - Dry age-related macular degeneration [Not Recovered/Not Resolved]
  - Vitreous degeneration [Not Recovered/Not Resolved]
  - Retinal pigmentation [Not Recovered/Not Resolved]

NARRATIVE: CASE EVENT DATE: 20201001
